FAERS Safety Report 6411906-6 (Version None)
Quarter: 2009Q4

REPORT INFORMATION
  Report Type: 
  Country: None (occurrence: None)
  Receive Date: 20091023
  Receipt Date: 20091014
  Transmission Date: 20100525
  Serious: Yes (Life-Threatening, Other)
  Sender: FDA-Public Use
  Company Number: US-PFIZER INC-2009269592

PATIENT
  Age: 69 Year
  Sex: Male

DRUGS (1)
  1. CELEBREX [Suspect]

REACTIONS (6)
  - ANAPHYLACTIC SHOCK [None]
  - ANOSMIA [None]
  - CARDIAC ARREST [None]
  - DIARRHOEA [None]
  - MOTOR DYSFUNCTION [None]
  - URTICARIA [None]
